FAERS Safety Report 10914100 (Version 1)
Quarter: 2015Q1

REPORT INFORMATION
  Report Type: Spontaneous
  Country: US (occurrence: None)
  Receive Date: 20150310
  Receipt Date: 20150310
  Transmission Date: 20150721
  Serious: Yes (Hospitalization)
  Sender: FDA-Public Use
  Company Number: US-H14001-15-00374

PATIENT
  Age: 73 Year
  Sex: Female

DRUGS (4)
  1. MOUTH RINSE (OTHER THERAPEUTIC PRODUCTS) [Concomitant]
  2. ANTIBIOTICS [Concomitant]
     Active Substance: UNSPECIFIED INGREDIENT
  3. ANALGESICS [Concomitant]
     Active Substance: UNSPECIFIED INGREDIENT
  4. ZOLEDRONIC ACID [Suspect]
     Active Substance: ZOLEDRONIC ACID
     Indication: OSTEOPOROSIS
     Dosage: 1 IN 1 Y
     Route: 042

REACTIONS (4)
  - Osteonecrosis [None]
  - Pathological fracture [None]
  - Heart rate increased [None]
  - Gingivitis [None]
